FAERS Safety Report 5012510-7 (Version None)
Quarter: 2006Q2

REPORT INFORMATION
  Report Type: 
  Country: None (occurrence: None)
  Receive Date: 20060414
  Receipt Date: 20060112
  Transmission Date: 20061013
  Serious: No
  Sender: FDA-Public Use
  Company Number: 2006SP000245

PATIENT
  Sex: Female

DRUGS (1)
  1. LUNESTA [Suspect]
     Indication: INSOMNIA
     Dates: start: 20060111

REACTIONS (1)
  - DYSGEUSIA [None]
